FAERS Safety Report 8130855-9 (Version None)
Quarter: 2012Q1

REPORT INFORMATION
  Report Type: 
  Country: None (occurrence: None)
  Receive Date: 20120213
  Receipt Date: 20120211
  Transmission Date: 20120608
  Serious: Yes (Other)
  Sender: FDA-Public Use
  Company Number: US-PFIZER INC-2012019896

PATIENT
  Sex: Female
  Weight: 68.027 kg

DRUGS (16)
  1. ACETYLSALICYLIC ACID AND BUTALBITAL AND CAFFEINE [Concomitant]
     Indication: MIGRAINE
     Dosage: UNK, 1X/DAY
  2. XANAX [Concomitant]
     Indication: BIPOLAR DISORDER
     Dosage: 1 MG, 2X/DAY
  3. TOVIAZ [Concomitant]
     Dosage: UNK
  4. PROAIR HFA [Concomitant]
     Dosage: 8.5 MG, UNK
  5. AMOXICILLIN [Concomitant]
     Dosage: 875 MG, UNK
  6. VALIUM [Concomitant]
     Indication: BIPOLAR DISORDER
     Dosage: 10 MG, 3X/DAY
  7. CELEXA [Concomitant]
     Indication: DEPRESSION
     Dosage: 40 MG, 2X/DAY
  8. PROMETHAZINE [Concomitant]
     Dosage: 25 MG, UNK
  9. CHANTIX [Suspect]
     Dosage: 1 MG, 2X/DAY
     Route: 048
     Dates: start: 20120101
  10. TEGRETOL [Concomitant]
     Indication: BIPOLAR DISORDER
     Dosage: 200 MG, 4X/DAY
  11. TRAZODONE [Concomitant]
     Dosage: 100 MG, 1X/DAY
  12. FLUTICASONE [Concomitant]
     Dosage: 50 MG, 2X/DAY
     Route: 045
  13. CHANTIX [Suspect]
     Indication: SMOKING CESSATION THERAPY
     Dosage: 0.5 MG, 1X/DAY
     Route: 048
     Dates: start: 20120121, end: 20120101
  14. SYNTHROID [Concomitant]
     Indication: THYROID DISORDER
     Dosage: 0.15 MG, 1X/DAY
  15. POTASSIUM [Concomitant]
     Dosage: UNK
  16. CALCIUM [Concomitant]
     Dosage: UNK

REACTIONS (6)
  - INSOMNIA [None]
  - HOMICIDAL IDEATION [None]
  - IRRITABILITY [None]
  - FEELING ABNORMAL [None]
  - TOBACCO USER [None]
  - NAUSEA [None]
